FAERS Safety Report 15226486 (Version 1)
Quarter: 2018Q3

REPORT INFORMATION
  Report Type: Spontaneous
  Country: US (occurrence: US)
  Receive Date: 20180706
  Receipt Date: 20180706
  Transmission Date: 20181010
  Serious: No
  Sender: FDA-Public Use
  Company Number: None

PATIENT
  Age: 65 Year
  Sex: Female

DRUGS (18)
  1. NO DRUG NAME [Concomitant]
  2. ENBREL [Suspect]
     Active Substance: ETANERCEPT
     Indication: RHEUMATOID ARTHRITIS
     Route: 058
     Dates: start: 20140418
  3. FLUCONAZOLE. [Concomitant]
     Active Substance: FLUCONAZOLE
  4. AMPICILLIN [Concomitant]
     Active Substance: AMPICILLIN
  5. CIPROFLOXACIN. [Concomitant]
     Active Substance: CIPROFLOXACIN
  6. ESOMEPRA MAG [Concomitant]
  7. AMITIZA [Concomitant]
     Active Substance: LUBIPROSTONE
  8. HYDROXYCHLOR [Concomitant]
     Active Substance: HYDROXYCHLOROQUINE
  9. POLYETH GLYC POW [Concomitant]
  10. DICLOFENAC [Concomitant]
     Active Substance: DICLOFENAC
  11. PROAIR HFA AER [Concomitant]
  12. MAPAP [Concomitant]
     Active Substance: ACETAMINOPHEN
  13. DIAZEPAM. [Concomitant]
     Active Substance: DIAZEPAM
  14. LINZESS [Concomitant]
     Active Substance: LINACLOTIDE
  15. ALBUTEROL NEB [Concomitant]
  16. ADVAIR DISKUS AER [Concomitant]
  17. TUDORZA PRES AER [Concomitant]
  18. TRULANCE [Concomitant]
     Active Substance: PLECANATIDE

REACTIONS (1)
  - Colectomy [None]

NARRATIVE: CASE EVENT DATE: 201806
